FAERS Safety Report 7046785-X (Version None)
Quarter: 2010Q4

REPORT INFORMATION
  Report Type: 
  Country: None (occurrence: None)
  Receive Date: 20101007
  Receipt Date: 20100923
  Transmission Date: 20110411
  Serious: Yes (Other)
  Sender: FDA-Public Use
  Company Number: DSA_43619_2010

PATIENT
  Age: 60 Year
  Sex: Male

DRUGS (4)
  1. ENALAPRIL MALEATE [Suspect]
     Indication: HYPERTENSION
     Dosage: (20 MG QD ORAL)
     Route: 048
     Dates: end: 20100727
  2. DEROXAT [Concomitant]
  3. SECTRAL [Concomitant]
  4. TERCIAN /00759301/ [Concomitant]

REACTIONS (2)
  - LEUKOPENIA [None]
  - LYMPHOPENIA [None]
